FAERS Safety Report 13361402 (Version 7)
Quarter: 2018Q1

REPORT INFORMATION
  Report Type: Spontaneous
  Country: IT (occurrence: IT)
  Receive Date: 20170323
  Receipt Date: 20180227
  Transmission Date: 20180508
  Serious: Yes (Hospitalization)
  Sender: FDA-Public Use
  Company Number: IT-BAXTER-2017BAX012208

PATIENT
  Age: 78 Year
  Sex: Female
  Weight: 40 kg

DRUGS (6)
  1. FUROSEMIDE. [Suspect]
     Active Substance: FUROSEMIDE
     Indication: FLUID OVERLOAD
     Route: 042
     Dates: start: 201703
  2. FUROSEMIDE. [Suspect]
     Active Substance: FUROSEMIDE
     Indication: ANURIA
     Route: 042
     Dates: start: 20170314
  3. PHYSIONEAL [Suspect]
     Active Substance: CALCIUM CHLORIDE\DEXTROSE\MAGNESIUM CHLORIDE\SODIUM CHLORIDE SOLUTION
     Indication: PERITONEAL DIALYSIS
     Route: 033
  4. FUROSEMIDE. [Suspect]
     Active Substance: FUROSEMIDE
     Route: 048
  5. EXTRANEAL [Suspect]
     Active Substance: CALCIUM CHLORIDE\ICODEXTRIN\MAGNESIUM CHLORIDE\SODIUM CHLORIDE\SODIUM LACTATE
     Indication: PERITONEAL DIALYSIS
     Route: 033
     Dates: start: 20170308, end: 20170313
  6. PHYSIONEAL [Suspect]
     Active Substance: CALCIUM CHLORIDE\DEXTROSE\MAGNESIUM CHLORIDE\SODIUM CHLORIDE SOLUTION
     Indication: PERITONEAL DIALYSIS
     Route: 033

REACTIONS (6)
  - Pulmonary arterial pressure increased [Unknown]
  - Fluid overload [Recovered/Resolved]
  - Rales [Unknown]
  - Anuria [Recovered/Resolved]
  - Weight decreased [Unknown]
  - Oedema [Unknown]

NARRATIVE: CASE EVENT DATE: 20170206
